FAERS Safety Report 7064922-8 (Version None)
Quarter: 2010Q4

REPORT INFORMATION
  Report Type: 
  Country: None (occurrence: None)
  Receive Date: 20101027
  Receipt Date: 20101025
  Transmission Date: 20110411
  Serious: Yes (Other)
  Sender: FDA-Public Use
  Company Number: SE-PFIZER INC-2010135004

PATIENT
  Age: 73 Year
  Sex: Male

DRUGS (5)
  1. NORVASC [Suspect]
     Indication: HYPERTENSION
     Dosage: UNK
     Dates: start: 20060101
  2. LASIX [Suspect]
  3. ENALAPRIL [Suspect]
  4. ETALPHA [Suspect]
  5. CALCIUM CARBONATE [Suspect]

REACTIONS (3)
  - FATIGUE [None]
  - INTESTINAL HAEMORRHAGE [None]
  - MELAENA [None]
